FAERS Safety Report 18477232 (Version 1)
Quarter: 2020Q4

REPORT INFORMATION
  Report Type: Spontaneous
  Country: GB (occurrence: GB)
  Receive Date: 20201107
  Receipt Date: 20201107
  Transmission Date: 20210114
  Serious: Yes (Other)
  Sender: FDA-Public Use
  Company Number: GB-TEVA-2020-GB-1844996

PATIENT
  Age: 75 Year
  Sex: Male
  Weight: 61.68 kg

DRUGS (2)
  1. TAMSULOSIN HYDROCHLORIDE. [Concomitant]
     Active Substance: TAMSULOSIN HYDROCHLORIDE
  2. FINASTERIDE. [Suspect]
     Active Substance: FINASTERIDE
     Indication: PROSTATOMEGALY
     Dosage: EVENINGS, THEN MOVED TO MORNINGS UNIT DOSE: 5 MG
     Route: 048
     Dates: start: 20130410, end: 20200811

REACTIONS (4)
  - Tension [Recovered/Resolved]
  - Depression [Recovered/Resolved]
  - Suicidal ideation [Recovered/Resolved]
  - Lethargy [Recovering/Resolving]
